FAERS Safety Report 9798982 (Version 1)
Quarter: 2013Q4

REPORT INFORMATION
  Report Type: Spontaneous
  Country: US (occurrence: None)
  Receive Date: 20131231
  Receipt Date: 20131231
  Transmission Date: 20140711
  Serious: Yes (Hospitalization)
  Sender: FDA-Public Use
  Company Number: UCM201312-000096

PATIENT
  Age: 33 Year
  Sex: Male

DRUGS (6)
  1. AMLODIPINE (AMLODIPINE) (AMLODIPINE) [Suspect]
  2. ACETAMINOPHEN OXYCODONE [Suspect]
  3. HYDROXYUREA [Suspect]
  4. METHADONE (METHADONE) (METHADONE) [Suspect]
  5. FOLIC ACID (FOLIC ACID) (FOLIC ACID) [Suspect]
  6. LISINOPRIL (LISINOPRIL) (LISINOPRIL) [Suspect]

REACTIONS (4)
  - Pancreatitis acute [None]
  - Metabolic acidosis [None]
  - Respiratory distress [None]
  - Hypotension [None]
